FAERS Safety Report 4367826-4 (Version None)
Quarter: 2004Q2

REPORT INFORMATION
  Report Type: 
  Country: None (occurrence: None)
  Receive Date: 20040527
  Receipt Date: 20031124
  Transmission Date: 20050107
  Serious: Yes (Hospitalization)
  Sender: FDA-Public Use
  Company Number: ZONI001266

PATIENT
  Age: 70 Year
  Sex: Female

DRUGS (3)
  1. ZONEGRAN [Suspect]
     Indication: DRUG USE FOR UNKNOWN INDICATION
     Dosage: 200 MG DAILY ORAL
     Route: 048
     Dates: start: 20030101
  2. DILANTIN [Concomitant]
  3. NEURONTIN [Concomitant]

REACTIONS (1)
  - CONVULSION [None]
